FAERS Safety Report 11147283 (Version 1)
Quarter: 2015Q2

REPORT INFORMATION
  Report Type: Spontaneous
  Country: ES (occurrence: ES)
  Receive Date: 20150528
  Receipt Date: 20150528
  Transmission Date: 20150821
  Serious: Yes (Other)
  Sender: FDA-Public Use
  Company Number: ES-AMGEN-ESPSP2015051216

PATIENT
  Age: 48 Year
  Sex: Female

DRUGS (4)
  1. OPTAVA [Concomitant]
     Indication: DRY EYE
     Dosage: UNK, AS NEEDED
  2. SYSTANE (HYPROMELLOSE 2910 (4000 MPA.S)) [Concomitant]
     Active Substance: HYPROMELLOSE 2910 (4000 MPA.S)
     Indication: DRY EYE
     Dosage: 2 OR 3 TIMES DAILY IN BOTH EYES
     Route: 047
  3. ENBREL [Suspect]
     Active Substance: ETANERCEPT
     Indication: RHEUMATOID ARTHRITIS
     Dosage: 50 MG, WEEKLY, ON FRIDAYS
     Route: 058
     Dates: start: 20150206
  4. SALAGEN [Concomitant]
     Active Substance: PILOCARPINE HYDROCHLORIDE
     Indication: DRY EYE
     Dosage: 5 MG, 3X/DAY

REACTIONS (2)
  - Injection site swelling [Not Recovered/Not Resolved]
  - Glaucoma [Not Recovered/Not Resolved]

NARRATIVE: CASE EVENT DATE: 20150508
